FAERS Safety Report 9275494 (Version 1)
Quarter: 2013Q2

REPORT INFORMATION
  Report Type: Spontaneous
  Country: CN (occurrence: CN)
  Receive Date: 20130507
  Receipt Date: 20130507
  Transmission Date: 20140414
  Serious: Yes (Other)
  Sender: FDA-Public Use
  Company Number: CN-JNJFOC-20130501905

PATIENT
  Age: 52 Year
  Sex: Female

DRUGS (2)
  1. DAKTARIN [Suspect]
     Route: 061
  2. DAKTARIN [Suspect]
     Indication: TINEA PEDIS
     Route: 061
     Dates: start: 201304

REACTIONS (2)
  - Eye infection fungal [Not Recovered/Not Resolved]
  - Accidental exposure to product [Unknown]
